FAERS Safety Report 16993927 (Version 2)
Quarter: 2019Q4

REPORT INFORMATION
  Report Type: Spontaneous
  Country: JP (occurrence: JP)
  Receive Date: 20191105
  Receipt Date: 20191202
  Transmission Date: 20200122
  Serious: Yes (Death, Other)
  Sender: FDA-Public Use
  Company Number: JP-GLAXOSMITHKLINE-JP2019JPN166309

PATIENT
  Age: 55 Year
  Sex: Female
  Weight: 94 kg

DRUGS (10)
  1. DEXART INJECTION [Suspect]
     Active Substance: DEXAMETHASONE SODIUM PHOSPHATE
     Indication: PREMEDICATION
     Dosage: 6.6 MG, QD
     Route: 042
     Dates: start: 20111014, end: 20190912
  2. CARBOPLATIN. [Concomitant]
     Active Substance: CARBOPLATIN
     Indication: OVARIAN CANCER
     Dosage: UNK
     Dates: start: 20190620, end: 20190829
  3. PACLITAXEL. [Concomitant]
     Active Substance: PACLITAXEL
     Indication: OVARIAN CANCER
     Dosage: UNK
     Dates: start: 20190620, end: 20190829
  4. POLARAMINE [Suspect]
     Active Substance: DEXCHLORPHENIRAMINE MALEATE
     Indication: PREMEDICATION
     Dosage: 5 MG, QD
     Route: 042
     Dates: start: 20190620, end: 20190912
  5. TELMISARTAN TABLETS [Concomitant]
     Active Substance: TELMISARTAN
     Dosage: 40 MG, UNK
  6. GRANISETRON [Concomitant]
     Active Substance: GRANISETRON
     Indication: PREMEDICATION
     Dosage: UNK
     Dates: start: 20190620
  7. SEISHOKU [Concomitant]
     Active Substance: SODIUM CHLORIDE
     Dosage: UNK
     Dates: start: 20190912
  8. ZANTAC [Suspect]
     Active Substance: RANITIDINE HYDROCHLORIDE
     Indication: PREMEDICATION
     Dosage: 50 MG, 1D
     Route: 042
     Dates: start: 20190620, end: 20190912
  9. HYDROCHLOROTHIAZIDE TABLETS [Concomitant]
     Active Substance: HYDROCHLOROTHIAZIDE
     Dosage: 12.5 MG, UNK
  10. AMLODIPINE BESILATE TABLET [Concomitant]
     Active Substance: AMLODIPINE BESYLATE
     Dosage: 2.5 MG, UNK

REACTIONS (16)
  - Pupillary reflex impaired [Unknown]
  - Respiratory failure [Unknown]
  - Tachycardia [Unknown]
  - Circulatory collapse [Unknown]
  - Nausea [Unknown]
  - Acidosis [Unknown]
  - Erythema [Unknown]
  - Flushing [Recovering/Resolving]
  - Vomiting [Unknown]
  - Blood pressure decreased [Unknown]
  - Respiratory arrest [Unknown]
  - Loss of consciousness [Recovering/Resolving]
  - Heart rate decreased [Unknown]
  - Pulse absent [Unknown]
  - Anaphylactic shock [Fatal]
  - Pallor [Recovering/Resolving]

NARRATIVE: CASE EVENT DATE: 20190912
